FAERS Safety Report 12252273 (Version 1)
Quarter: 2016Q2

REPORT INFORMATION
  Report Type: Spontaneous
  Country: US (occurrence: None)
  Receive Date: 20160408
  Receipt Date: 20160408
  Transmission Date: 20160815
  Serious: Yes (Disabling)
  Sender: FDA-Public Use
  Company Number: None

PATIENT
  Age: 67 Year
  Sex: Female
  Weight: 67.13 kg

DRUGS (6)
  1. OSPHENA [Suspect]
     Active Substance: OSPEMIFENE
     Indication: MENOPAUSAL SYMPTOMS
     Dosage: IN THE MORNING TAKEN BY MOUTH
     Route: 048
     Dates: start: 20160118, end: 20160215
  2. SYNTHROID [Concomitant]
     Active Substance: LEVOTHYROXINE SODIUM
  3. CRANBERRY PILLS [Concomitant]
  4. VERAPAMIL [Concomitant]
     Active Substance: VERAPAMIL HYDROCHLORIDE
  5. OSPHENA [Suspect]
     Active Substance: OSPEMIFENE
     Indication: DISCOMFORT
     Dosage: IN THE MORNING TAKEN BY MOUTH
     Route: 048
     Dates: start: 20160118, end: 20160215
  6. ACIDOPHILIS [Concomitant]
     Active Substance: LACTOBACILLUS ACIDOPHILUS

REACTIONS (2)
  - Deafness [None]
  - Tinnitus [None]

NARRATIVE: CASE EVENT DATE: 20160208
